FAERS Safety Report 24090716 (Version 1)
Quarter: 2024Q3

REPORT INFORMATION
  Report Type: Spontaneous
  Country: GB (occurrence: GB)
  Receive Date: 20240715
  Receipt Date: 20240715
  Transmission Date: 20241016
  Serious: Yes (Other)
  Sender: TEVA
  Company Number: None

PATIENT
  Age: 72 Year
  Sex: Male
  Weight: 64 kg

DRUGS (1)
  1. FINASTERIDE [Suspect]
     Active Substance: FINASTERIDE
     Indication: Bladder irritation
     Dosage: 5MG/D?RETURNED TO GP SURGERY
     Dates: start: 20211208, end: 20231120

REACTIONS (4)
  - Medication error [Unknown]
  - Hypertonic bladder [Not Recovered/Not Resolved]
  - Alopecia [Not Recovered/Not Resolved]
  - Genital erosion [Not Recovered/Not Resolved]

NARRATIVE: CASE EVENT DATE: 20220101
